FAERS Safety Report 17301040 (Version 1)
Quarter: 2020Q1

REPORT INFORMATION
  Report Type: Spontaneous
  Country: JP (occurrence: JP)
  Receive Date: 20200122
  Receipt Date: 20200122
  Transmission Date: 20200409
  Serious: Yes (Other)
  Sender: FDA-Public Use
  Company Number: JP-PFIZER INC-2020028061

PATIENT

DRUGS (3)
  1. ISOVORIN [Suspect]
     Active Substance: LEUCOVORIN CALCIUM
  2. OXALIPLATIN. [Suspect]
     Active Substance: OXALIPLATIN
  3. 5-FU [FLUOROURACIL] [Suspect]
     Active Substance: FLUOROURACIL

REACTIONS (1)
  - Bone marrow failure [Unknown]
